FAERS Safety Report 8500344-8 (Version None)
Quarter: 2012Q3

REPORT INFORMATION
  Report Type: 
  Country: None (occurrence: None)
  Receive Date: 20120710
  Receipt Date: 20120702
  Transmission Date: 20120928
  Serious: Yes (Other)
  Sender: FDA-Public Use
  Company Number: US-JNJFOC-20120701045

PATIENT
  Sex: Female
  Weight: 51.71 kg

DRUGS (4)
  1. REMICADE [Suspect]
     Route: 042
     Dates: start: 20120327
  2. BIRTH CONTROL PILL [Concomitant]
     Indication: CONTRACEPTION
     Route: 048
     Dates: start: 20060101
  3. REMICADE [Suspect]
     Indication: PSORIASIS
     Route: 042
     Dates: start: 20120606, end: 20120606
  4. REMICADE [Suspect]
     Dosage: 3 BOTTLES
     Route: 042
     Dates: start: 20090601

REACTIONS (7)
  - INFUSION RELATED REACTION [None]
  - NASOPHARYNGITIS [None]
  - DIZZINESS [None]
  - NAUSEA [None]
  - HYPOKINESIA [None]
  - FATIGUE [None]
  - PALPITATIONS [None]
